FAERS Safety Report 5950118-7 (Version None)
Quarter: 2008Q4

REPORT INFORMATION
  Report Type: 
  Country: None (occurrence: None)
  Receive Date: 20081112
  Receipt Date: 20081031
  Transmission Date: 20090506
  Serious: Yes (Hospitalization, Other)
  Sender: FDA-Public Use
  Company Number: KR-ROCHE-582950

PATIENT
  Sex: Male
  Weight: 69.7 kg

DRUGS (20)
  1. CAPECITABINE [Suspect]
     Dosage: DATE OF LAST DOSE PRIOR TO SAE: 25 AUGUST 2008 TEMPORARILY INTERRUPTED
     Route: 048
     Dates: start: 20080703, end: 20081013
  2. OXALIPLATIN [Suspect]
     Dosage: FORM: INFUSION DATE OF LAST DOSE PRIOR TO SAE: 21 AUGUST 2008
     Route: 042
     Dates: start: 20080703, end: 20081013
  3. METOCLOPRAMIDE [Concomitant]
     Dates: start: 20080821, end: 20080825
  4. GRANISETRON [Concomitant]
     Dates: start: 20080821, end: 20080823
  5. DEXAMETHASONE 0.5MG TAB [Concomitant]
     Dates: start: 20080821, end: 20080823
  6. ASPIRIN [Concomitant]
     Dosage: ENTERIC COATED CAPSULE
     Dates: start: 20080605, end: 20080825
  7. ASPIRIN [Concomitant]
     Dates: start: 20080923
  8. DILTIAZEM HCL [Concomitant]
     Dates: start: 20080605, end: 20080825
  9. ISOSORBIDE [Concomitant]
     Dates: start: 20080605, end: 20080825
  10. FOLIC ACID [Concomitant]
     Dosage: TOTAL DAILY DOSE REPORTED AS 1T
     Dates: start: 20080605, end: 20080825
  11. HYDROXYCHLOROQUINE [Concomitant]
     Dates: start: 20080605, end: 20080825
  12. PANTOPRAZOLE SODIUM [Concomitant]
     Dates: start: 20080827, end: 20080829
  13. TRANEXAMIC ACID [Concomitant]
     Dates: start: 20080830
  14. NOREPINEPHRINE [Concomitant]
     Dates: start: 20080827, end: 20080827
  15. MIDAZOLAM HCL [Concomitant]
     Dates: start: 20080827, end: 20080827
  16. VECURONIUM BROMIDE [Concomitant]
     Dates: start: 20080827, end: 20080827
  17. FUROSEMIDE [Concomitant]
     Dates: start: 20080828, end: 20080828
  18. BISOPROLOL FUMARATE [Concomitant]
     Dates: start: 20080923
  19. NICORANDIL [Concomitant]
     Dates: start: 20080923
  20. TRIMETAZIDINE [Concomitant]
     Dates: start: 20081013

REACTIONS (7)
  - ABSCESS [None]
  - DISSEMINATED INTRAVASCULAR COAGULATION [None]
  - INFECTION [None]
  - PNEUMONIA NECROTISING [None]
  - PULMONARY HAEMORRHAGE [None]
  - PYREXIA [None]
  - RESPIRATORY ACIDOSIS [None]
